FAERS Safety Report 7273512-3 (Version None)
Quarter: 2011Q1

REPORT INFORMATION
  Report Type: 
  Country: None (occurrence: None)
  Receive Date: 20110203
  Receipt Date: 20110131
  Transmission Date: 20110831
  Serious: No
  Sender: FDA-Public Use
  Company Number: US-PFIZER INC-US-WYE-H16359410

PATIENT
  Sex: Female

DRUGS (1)
  1. PROTONIX [Suspect]
     Dosage: UNK
     Route: 065

REACTIONS (13)
  - GASTROOESOPHAGEAL REFLUX DISEASE [None]
  - GINGIVAL PAIN [None]
  - ERUCTATION [None]
  - DYSGEUSIA [None]
  - FATIGUE [None]
  - PAIN IN JAW [None]
  - DYSPEPSIA [None]
  - ORAL PAIN [None]
  - DIARRHOEA [None]
  - OROPHARYNGEAL PAIN [None]
  - NAUSEA [None]
  - COUGH [None]
  - VOMITING [None]
